FAERS Safety Report 23793000 (Version 1)
Quarter: 2024Q2

REPORT INFORMATION
  Report Type: Report from Study
  Country: US (occurrence: US)
  Receive Date: 20240429
  Receipt Date: 20240429
  Transmission Date: 20240716
  Serious: Yes (Other)
  Sender: FDA-Public Use
  Company Number: US-ASTELLAS-2024EU002491

PATIENT
  Age: 67 Year
  Sex: Male
  Weight: 132.8 kg

DRUGS (15)
  1. ENZALUTAMIDE [Suspect]
     Active Substance: ENZALUTAMIDE
     Indication: Prostate cancer
     Dosage: 160 MG, ONCE DAILY, (IN THE MORNING)
     Route: 048
     Dates: start: 20230719, end: 20231218
  2. TYLENOL [Concomitant]
     Active Substance: ACETAMINOPHEN
     Indication: Product used for unknown indication
     Dosage: UNK UNK, UNKNOWN FREQ.
     Route: 048
     Dates: end: 20240222
  3. NORVASC [Concomitant]
     Active Substance: AMLODIPINE BESYLATE
     Indication: Hypertension
     Dosage: 10 MG, ONCE DAILY, , (IN THE MORNING, ONCE DAILY BY MOUTH 90
     Route: 048
     Dates: start: 20220420
  4. EPIPEN [Concomitant]
     Active Substance: EPINEPHRINE
     Indication: Anaphylactic reaction
     Dosage: 0.3 MG/0.3 ML INTO THIGH AS NEEDED
     Route: 065
     Dates: start: 20220324, end: 20240219
  5. PEPCID [Concomitant]
     Active Substance: FAMOTIDINE
     Indication: Product used for unknown indication
     Route: 048
     Dates: start: 20220405
  6. LUPRON DEPOT [Concomitant]
     Active Substance: LEUPROLIDE ACETATE
     Indication: Product used for unknown indication
     Dosage: 45 MG, UNKNOWN FREQ
     Route: 065
     Dates: start: 20221227
  7. TOPROL XL [Concomitant]
     Active Substance: METOPROLOL SUCCINATE
     Indication: Product used for unknown indication
     Dosage: 25 MG, UNKNOWN FREQ, (24 HR- TAKE 1- HALF TABLET BY MOUTH ONE TIME DAILY)
     Route: 048
     Dates: start: 20231024
  8. PRILOSEC [Concomitant]
     Active Substance: OMEPRAZOLE MAGNESIUM
     Indication: Gastrooesophageal reflux disease
     Dosage: 40 MG, ONCE DAILY, (DAILY WITH POSTIVE EFFECT)
     Route: 065
     Dates: start: 20220405
  9. LYRICA [Concomitant]
     Active Substance: PREGABALIN
     Indication: Back pain
     Dosage: 50 MG, TWICE DAILY, (1 CAPSULE IN MORNING, 1 BEFORE BEDTIME DISP:180 CAPS)
     Route: 048
     Dates: start: 20220413
  10. ZANAFLEX [Concomitant]
     Active Substance: TIZANIDINE HYDROCHLORIDE
     Indication: Muscle spasms
     Dosage: 4 MG, TWICE DAILY, (AS NEEDED DISP: 30 TABLETS)
     Route: 048
     Dates: start: 20240219
  11. BREZTRI [Concomitant]
     Active Substance: BUDESONIDE\FORMOTEROL\GLYCOPYRROLATE
     Indication: Product used for unknown indication
     Dosage: 160 MG, AS NEEDED, (160-9-4-8 MCG/ACTUATION HFA AEROSOL)
     Route: 050
  12. CANNABIDIOL\HERBALS [Concomitant]
     Active Substance: CANNABIDIOL\HERBALS
     Indication: Product used for unknown indication
     Dosage: UNK UNK, UNKNOWN FREQ.
     Route: 048
  13. ZITHROMAX [Concomitant]
     Active Substance: AZITHROMYCIN DIHYDRATE
     Indication: Urinary tract infection
     Dosage: 250 MG, UNKNOWN FREQ, (2 TABLETS FIRST DAY THEN 1 TABLET DAILY FOR 4 DAYS)
     Route: 065
     Dates: start: 20231210, end: 20240219
  14. METHYLPREDNISOLONE SODIUM SUCCINATE [Concomitant]
     Active Substance: METHYLPREDNISOLONE SODIUM SUCCINATE
     Indication: Product used for unknown indication
     Route: 030
     Dates: start: 20240219
  15. XARELTO [Concomitant]
     Active Substance: RIVAROXABAN
     Indication: Atrial fibrillation
     Route: 065
     Dates: start: 20220405

REACTIONS (5)
  - Loss of consciousness [Unknown]
  - Hyperhidrosis [Unknown]
  - Chest pain [Recovering/Resolving]
  - Dizziness [Recovering/Resolving]
  - Headache [Unknown]

NARRATIVE: CASE EVENT DATE: 20231201
